FAERS Safety Report 4436745-7 (Version None)
Quarter: 2004Q3

REPORT INFORMATION
  Report Type: 
  Country: None (occurrence: None)
  Receive Date: 20040728
  Receipt Date: 20030911
  Transmission Date: 20050211
  Serious: No
  Sender: FDA-Public Use
  Company Number: 202433

PATIENT
  Age: 85 Year
  Sex: Male
  Weight: 69 kg

DRUGS (3)
  1. RITUXAN [Suspect]
     Indication: DRUG USE FOR UNKNOWN INDICATION
     Dosage: 675 MG, SINGLE, INTRAVENOUS
     Route: 042
     Dates: start: 20030910, end: 20030910
  2. TYLENOL [Concomitant]
  3. BENDRYL (DIPHENHYDRAMINE HYDROCHLORIDE) [Concomitant]

REACTIONS (5)
  - BLOOD PRESSURE DECREASED [None]
  - CHILLS [None]
  - COLD SWEAT [None]
  - HEART RATE DECREASED [None]
  - NAUSEA [None]
